FAERS Safety Report 4665628-2 (Version None)
Quarter: 2005Q2

REPORT INFORMATION
  Report Type: 
  Country: None (occurrence: None)
  Receive Date: 20050517
  Receipt Date: 20050426
  Transmission Date: 20051028
  Serious: Yes (Other)
  Sender: FDA-Public Use
  Company Number: US_0410106934

PATIENT
  Age: 35 Year
  Sex: Female
  Weight: 128 kg

DRUGS (28)
  1. ZYPREXA [Suspect]
     Dosage: 25 MG DAY
     Dates: start: 19971201, end: 20000322
  2. PROZAC [Concomitant]
  3. PROMETHAZINE [Concomitant]
  4. DOXYCYCLINE [Concomitant]
  5. LORAZEPAM [Concomitant]
  6. TOPAMAX [Concomitant]
  7. VERAPAMIL [Concomitant]
  8. SYNTHROID [Concomitant]
  9. LUSTRA CREAM [Concomitant]
  10. CYLERT [Concomitant]
  11. PRILOSEC (OMEPRAZOLE RATIOPHARM) [Concomitant]
  12. NOVAHISTINE ELIXIR [Concomitant]
  13. HYDROCODONE W/PAP [Concomitant]
  14. PHENTERMINE [Concomitant]
  15. LORCET-HD [Concomitant]
  16. AVITA (TRETINOIN) [Concomitant]
  17. BROMPHEN DC [Concomitant]
  18. LOESTRIN 1.5/30 [Concomitant]
  19. NEURONTIN (GABAPENTIN PFIZER) [Concomitant]
  20. BUSPAR [Concomitant]
  21. DYAZIDE [Concomitant]
  22. AXID [Concomitant]
  23. GABITRIL [Concomitant]
  24. NAVANE [Concomitant]
  25. INDERAL [Concomitant]
  26. PROLIXIN [Concomitant]
  27. COGENTIN (BENXATROPINE MESILATE) [Concomitant]
  28. PREVACID [Concomitant]

REACTIONS (35)
  - AGITATION [None]
  - AMNESIA [None]
  - ARTHRITIS [None]
  - BLOOD ALKALINE PHOSPHATASE INCREASED [None]
  - BLOOD BICARBONATE DECREASED [None]
  - BLOOD CHLORIDE INCREASED [None]
  - BLOOD GLUCOSE INCREASED [None]
  - BORDERLINE PERSONALITY DISORDER [None]
  - CARDIAC DISORDER [None]
  - CERVIX CARCINOMA STAGE I [None]
  - COORDINATION ABNORMAL [None]
  - DEPRESSION [None]
  - DIABETES MELLITUS NON-INSULIN-DEPENDENT [None]
  - DIFFICULTY IN WALKING [None]
  - DRUG ABUSER [None]
  - DYSPLASIA [None]
  - GRANULOMA [None]
  - HALLUCINATION, AUDITORY [None]
  - HYPERINSULINISM [None]
  - HYPOAESTHESIA [None]
  - INCREASED APPETITE [None]
  - INFECTION [None]
  - INFLUENZA [None]
  - INTENTIONAL SELF-INJURY [None]
  - OEDEMA PERIPHERAL [None]
  - PELVIC INFLAMMATORY DISEASE [None]
  - PRESCRIBED OVERDOSE [None]
  - SKIN LESION [None]
  - SMEAR CERVIX ABNORMAL [None]
  - SUICIDAL IDEATION [None]
  - SUICIDE ATTEMPT [None]
  - THYROID DISORDER [None]
  - TREATMENT NONCOMPLIANCE [None]
  - URINARY TRACT INFECTION [None]
  - WEIGHT INCREASED [None]
